FAERS Safety Report 5779691-9 (Version None)
Quarter: 2008Q2

REPORT INFORMATION
  Report Type: 
  Country: None (occurrence: None)
  Receive Date: 20080619
  Receipt Date: 20080609
  Transmission Date: 20081010
  Serious: Yes (Disabling)
  Sender: FDA-Public Use
  Company Number: US-MERCK-0803USA01006

PATIENT
  Age: 61 Year
  Sex: Male
  Weight: 137 kg

DRUGS (2)
  1. COZAAR [Suspect]
     Indication: HYPERTENSION
     Route: 048
     Dates: start: 20080201, end: 20080208
  2. COZAAR [Suspect]
     Route: 048
     Dates: start: 20080209, end: 20080220

REACTIONS (2)
  - URINARY TRACT INFECTION [None]
  - VIRAL INFECTION [None]
